FAERS Safety Report 8870704 (Version 2)
Quarter: 2013Q4

REPORT INFORMATION
  Report Type: Spontaneous
  Country: CA (occurrence: CA)
  Receive Date: 20121026
  Receipt Date: 20131031
  Transmission Date: 20140711
  Serious: Yes (Death)
  Sender: FDA-Public Use
  Company Number: CA-009507513-1210CAN011742

PATIENT
  Sex: Female

DRUGS (2)
  1. VICTRELIS [Suspect]
     Indication: HEPATIC CIRRHOSIS
  2. PEGETRON [Suspect]
     Indication: HEPATIC CIRRHOSIS
     Dosage: UNK
     Dates: start: 201209

REACTIONS (1)
  - Death [Fatal]
